FAERS Safety Report 12516328 (Version 1)
Quarter: 2016Q2

REPORT INFORMATION
  Report Type: Spontaneous
  Country: US (occurrence: US)
  Receive Date: 20160630
  Receipt Date: 20160630
  Transmission Date: 20160815
  Serious: Yes (Other)
  Sender: FDA-Public Use
  Company Number: US-JNJFOC-20160508990

PATIENT
  Age: 42 Year
  Sex: Female
  Weight: 117.93 kg

DRUGS (7)
  1. NUCYNTA [Concomitant]
     Active Substance: TAPENTADOL HYDROCHLORIDE
     Indication: PAIN
     Route: 048
  2. LANSOPRAZOLE. [Concomitant]
     Active Substance: LANSOPRAZOLE
     Indication: GASTROOESOPHAGEAL REFLUX DISEASE
     Route: 048
  3. XARELTO [Suspect]
     Active Substance: RIVAROXABAN
     Indication: THROMBOSIS
     Route: 048
  4. LYRICA [Concomitant]
     Active Substance: PREGABALIN
     Indication: AUTOIMMUNE DISORDER
     Route: 065
  5. LYRICA [Concomitant]
     Active Substance: PREGABALIN
     Indication: AUTOIMMUNE DISORDER
     Route: 065
     Dates: start: 201603
  6. LYRICA [Concomitant]
     Active Substance: PREGABALIN
     Indication: INFLAMMATION
     Route: 065
     Dates: start: 201603
  7. LYRICA [Concomitant]
     Active Substance: PREGABALIN
     Indication: INFLAMMATION
     Route: 065

REACTIONS (5)
  - Haemorrhage [Unknown]
  - Rectal haemorrhage [Unknown]
  - Peripheral swelling [Not Recovered/Not Resolved]
  - Epistaxis [Unknown]
  - Vaginal haemorrhage [Unknown]

NARRATIVE: CASE EVENT DATE: 201604
